FAERS Safety Report 6300094-2 (Version None)
Quarter: 2009Q3

REPORT INFORMATION
  Report Type: 
  Country: None (occurrence: None)
  Receive Date: 20090806
  Receipt Date: 20090722
  Transmission Date: 20100115
  Serious: Yes (Death)
  Sender: FDA-Public Use
  Company Number: US-PFIZER INC-2009222070

PATIENT
  Sex: Male

DRUGS (9)
  1. ZOLOFT [Suspect]
     Indication: DEPRESSION
     Dosage: 100 MG, 1X/DAY
     Route: 048
     Dates: start: 20020516
  2. BEXTRA [Suspect]
     Indication: PAIN
     Dosage: 20 MG, 1X/DAY
     Route: 048
     Dates: start: 20020827
  3. BEXTRA [Suspect]
     Indication: INFLAMMATION
  4. OXYCODONE [Suspect]
     Indication: PAIN
     Dosage: 10 MG, 2X/DAY
     Dates: start: 20020516
  5. OXYCODONE [Suspect]
     Indication: BACK PAIN
  6. OXYCODONE [Suspect]
     Indication: DEPRESSION
  7. SKELAXIN [Concomitant]
     Dosage: 400 MG, AS NEEDED
     Route: 048
  8. ZONEGRAN [Concomitant]
     Dosage: UNK
     Route: 048
  9. ZANAFLEX [Concomitant]
     Dosage: UNK
     Route: 048

REACTIONS (7)
  - BACK PAIN [None]
  - DEPRESSION [None]
  - HYPOAESTHESIA [None]
  - INTERVERTEBRAL DISC DISORDER [None]
  - OVERDOSE [None]
  - PAIN [None]
  - PAIN IN EXTREMITY [None]
